FAERS Safety Report 5812274-0 (Version None)
Quarter: 2008Q3

REPORT INFORMATION
  Report Type: 
  Country: None (occurrence: None)
  Receive Date: 20080711
  Receipt Date: 20080630
  Transmission Date: 20090109
  Serious: Yes (Hospitalization)
  Sender: FDA-Public Use
  Company Number: 236233J08USA

PATIENT
  Age: 54 Year
  Sex: Female
  Weight: 68.0396 kg

DRUGS (5)
  1. REBIF [Suspect]
     Indication: MULTIPLE SCLEROSIS
     Dosage: 44 MCG, 3 IN 1 WEEKS, SUBCUTANEOUS
     Route: 058
     Dates: start: 20071027
  2. SNEMET (SINEMET) [Concomitant]
  3. ENALAPRIL MALEATE [Concomitant]
  4. SYNTHROID [Concomitant]
  5. VICODIN [Concomitant]

REACTIONS (5)
  - ANKLE FRACTURE [None]
  - FALL [None]
  - HYPOAESTHESIA [None]
  - MUSCULAR WEAKNESS [None]
  - WHEELCHAIR USER [None]
